FAERS Safety Report 6669240-5 (Version None)
Quarter: 2010Q2

REPORT INFORMATION
  Report Type: 
  Country: None (occurrence: None)
  Receive Date: 20100402
  Receipt Date: 20100322
  Transmission Date: 20101027
  Serious: Yes (Other)
  Sender: FDA-Public Use
  Company Number: 2010SP017338

PATIENT
  Age: 22 Year
  Sex: Female
  Weight: 82.5547 kg

DRUGS (1)
  1. IMPLANON [Suspect]
     Indication: DRUG USE FOR UNKNOWN INDICATION
     Dosage: 1 DF
     Dates: start: 20081002, end: 20090701

REACTIONS (1)
  - HAEMATOCHEZIA [None]
